FAERS Safety Report 15862393 (Version 2)
Quarter: 2019Q1

REPORT INFORMATION
  Report Type: Spontaneous
  Country: CN (occurrence: CN)
  Receive Date: 20190124
  Receipt Date: 20190320
  Transmission Date: 20190417
  Serious: Yes (Other)
  Sender: FDA-Public Use
  Company Number: CN-UNITED THERAPEUTICS-UNT-2019-000936

PATIENT
  Age: 2 Day
  Sex: Male
  Weight: 3.75 kg

DRUGS (5)
  1. NORADRENALINE                      /00127501/ [Concomitant]
     Active Substance: NOREPINEPHRINE
     Indication: PRODUCT USED FOR UNKNOWN INDICATION
     Dosage: 0.6 ?G/KG, CONTINUING
     Route: 065
  2. ADRENALINE                         /00003901/ [Concomitant]
     Active Substance: EPINEPHRINE
     Indication: PRODUCT USED FOR UNKNOWN INDICATION
     Dosage: 1 ?G/KG, CONTINUING
     Route: 065
  3. DOPAMINE [Concomitant]
     Active Substance: DOPAMINE\DOPAMINE HYDROCHLORIDE
     Indication: PRODUCT USED FOR UNKNOWN INDICATION
     Dosage: 20 ?G/KG, CONTINUING
     Route: 065
  4. NITRIC OXIDE. [Concomitant]
     Active Substance: NITRIC OXIDE
     Indication: PRODUCT USED FOR UNKNOWN INDICATION
     Dosage: 20 PPM, UNK
  5. REMODULIN [Suspect]
     Active Substance: TREPROSTINIL
     Indication: PERSISTENT FOETAL CIRCULATION
     Dosage: 0.1 ?G/KG, CONTINUING, TOTAL 10.5 ?G/KG
     Route: 058

REACTIONS (2)
  - Coagulopathy [Unknown]
  - Capillary leak syndrome [Unknown]
